FAERS Safety Report 16808288 (Version 2)
Quarter: 2020Q2

REPORT INFORMATION
  Report Type: Spontaneous
  Country: US (occurrence: US)
  Receive Date: 20190916
  Receipt Date: 20200402
  Transmission Date: 20200713
  Serious: Yes (Other)
  Sender: FDA-Public Use
  Company Number: US-GILEAD-2019-0428006

PATIENT
  Age: 44 Year
  Sex: Female
  Weight: 95.42 kg

DRUGS (65)
  1. VITAMIN B12 [Concomitant]
     Active Substance: CYANOCOBALAMIN
  2. ALBUTEROL SULFATE. [Concomitant]
     Active Substance: ALBUTEROL SULFATE
  3. VENTOLIN HFA [Concomitant]
     Active Substance: ALBUTEROL SULFATE
  4. ZITHROMAX [Concomitant]
     Active Substance: AZITHROMYCIN DIHYDRATE
  5. MIRALAX [Concomitant]
     Active Substance: POLYETHYLENE GLYCOL 3350
  6. KETOROLAC [Concomitant]
     Active Substance: KETOROLAC TROMETHAMINE
  7. SENNA [SENNOSIDE A+B CALCIUM] [Concomitant]
  8. LYRICA [Concomitant]
     Active Substance: PREGABALIN
  9. NORVASC [Concomitant]
     Active Substance: AMLODIPINE BESYLATE
  10. COMBIVENT [Concomitant]
     Active Substance: ALBUTEROL SULFATE\IPRATROPIUM BROMIDE
  11. CHERATUSSIN [Concomitant]
     Active Substance: AMMONIUM CHLORIDE\DEXTROMETHORPHAN\SODIUM CITRATE
  12. FLUCELVAX NOS [Concomitant]
     Active Substance: INFLUENZA A VIRUS A/BRISBANE/10/2010 (H1N1) ANTIGEN (MDCK CELL DERIVED, PROPIOLACTONE INACTIVATED)\INFLUENZA A VIRUS A/VICTORIA/361/2011 IVR-165 (H3N2) ANTIGEN (MDCK CELL DERIVED, PROPIOLACTONE INACTIVATED)\INFLUENZA B VIRUS B/WISCONSIN/1/2010) ANTIGEN (MDCK CELL DERIVED, PROPIOLACTONE INACTIVATED)
  13. AMLODIPINE BESYLATE. [Concomitant]
     Active Substance: AMLODIPINE BESYLATE
  14. CYANOCOBALAMIN. [Concomitant]
     Active Substance: CYANOCOBALAMIN
  15. ALBUTEROL SULFATE AND IPRATROPIUM BROMIDE [Concomitant]
     Active Substance: ALBUTEROL SULFATE\IPRATROPIUM BROMIDE
  16. ONDANSETRON [Concomitant]
     Active Substance: ONDANSETRON
  17. ROSUVASTATIN. [Concomitant]
     Active Substance: ROSUVASTATIN
  18. COMPLERA [Suspect]
     Active Substance: EMTRICITABINE\RILPIVIRINE HYDROCHLORIDE\TENOFOVIR DISOPROXIL FUMARATE
     Indication: HIV INFECTION
     Dosage: UNK
     Route: 048
     Dates: start: 20121128, end: 20171120
  19. SPIRIVA [Concomitant]
     Active Substance: TIOTROPIUM BROMIDE MONOHYDRATE
  20. CYMBALTA [Concomitant]
     Active Substance: DULOXETINE HYDROCHLORIDE
  21. CEFTRIAXONE. [Concomitant]
     Active Substance: CEFTRIAXONE
  22. ADVAIR UNSPEC [Concomitant]
  23. TIZANIDINE. [Concomitant]
     Active Substance: TIZANIDINE
  24. TUBERCULIN NOS [Concomitant]
     Active Substance: TUBERCULIN PURIFIED PROTEIN DERIVATIVE
  25. HYDRALAZINE APS [Concomitant]
     Active Substance: HYDRALAZINE HYDROCHLORIDE
  26. BENZOCAINE/MENTHOL [Concomitant]
  27. ASPIRIN [ACETYLSALICYLIC ACID] [Concomitant]
     Active Substance: ASPIRIN
  28. CLARITINE [Concomitant]
     Active Substance: LORATADINE
  29. LIPITOR [Concomitant]
     Active Substance: ATORVASTATIN CALCIUM
  30. DYAZIDE [Concomitant]
     Active Substance: HYDROCHLOROTHIAZIDE\TRIAMTERENE
  31. COZAAR [Concomitant]
     Active Substance: LOSARTAN POTASSIUM
  32. COZARIL [Concomitant]
  33. RANITIDINE HCL [Concomitant]
     Active Substance: RANITIDINE HYDROCHLORIDE
  34. FLUCONAZOLE. [Concomitant]
     Active Substance: FLUCONAZOLE
  35. HYDROCHLOROTHIAZIDE. [Concomitant]
     Active Substance: HYDROCHLOROTHIAZIDE
  36. DELTASONE N [Concomitant]
  37. TRAMADOL. [Concomitant]
     Active Substance: TRAMADOL
  38. HEPARIN [Concomitant]
     Active Substance: HEPARIN SODIUM
  39. POTASSIUM CHLORIDE. [Concomitant]
     Active Substance: POTASSIUM CHLORIDE
  40. LOSARTAN POTASSIUM. [Concomitant]
     Active Substance: LOSARTAN POTASSIUM
  41. ODEFSEY [Concomitant]
     Active Substance: EMTRICITABINE\RILPIVIRINE HYDROCHLORIDE\TENOFOVIR ALAFENAMIDE FUMARATE
  42. VICODIN [Concomitant]
     Active Substance: ACETAMINOPHEN\HYDROCODONE BITARTRATE
  43. DIALYVITE [Concomitant]
     Active Substance: ASCORBIC ACID\BIOTIN\CALCIUM PANTOTHENATE\COBALAMIN\FOLIC ACID\NIACINAMIDE\PYRIDOXINE HYDROCHLORIDE\RIBOFLAVIN\THIAMINE MONONITRATE
  44. ROBITUSSIN DM [Concomitant]
     Active Substance: DEXTROMETHORPHAN HYDROBROMIDE\GUAIFENESIN
  45. MOBIC [Concomitant]
     Active Substance: MELOXICAM
  46. NICOTINE TRANSDERMAL SYSTEM [Concomitant]
     Active Substance: NICOTINE
  47. PREDNISONE. [Concomitant]
     Active Substance: PREDNISONE
  48. NASONEX [Concomitant]
     Active Substance: MOMETASONE FUROATE
  49. CALCIUM [Concomitant]
     Active Substance: CALCIUM
  50. REGLAN [Concomitant]
     Active Substance: METOCLOPRAMIDE HYDROCHLORIDE
  51. COLACE [Concomitant]
     Active Substance: DOCUSATE SODIUM
  52. NYSTATIN. [Concomitant]
     Active Substance: NYSTATIN
  53. ZYRTEC [Concomitant]
     Active Substance: CETIRIZINE HYDROCHLORIDE
  54. CALCIUM + VIT D [Concomitant]
     Active Substance: CALCIUM\VITAMIN D
  55. BIKTARVY [Concomitant]
     Active Substance: BICTEGRAVIR SODIUM\EMTRICITABINE\TENOFOVIR ALAFENAMIDE FUMARATE
  56. MIRENA [Concomitant]
     Active Substance: LEVONORGESTREL
  57. FLAGYL [Concomitant]
     Active Substance: METRONIDAZOLE\METRONIDAZOLE HYDROCHLORIDE
  58. PRILOSEC [Concomitant]
     Active Substance: OMEPRAZOLE MAGNESIUM
  59. CHANTIX [Concomitant]
     Active Substance: VARENICLINE TARTRATE
  60. TRIAMCINOLONE ACETONIDE. [Concomitant]
     Active Substance: TRIAMCINOLONE ACETONIDE
  61. SUBOXONE [Concomitant]
     Active Substance: BUPRENORPHINE HYDROCHLORIDE\NALOXONE HYDROCHLORIDE
  62. THIAMINE. [Concomitant]
     Active Substance: THIAMINE
  63. ACETAMINOPHEN. [Concomitant]
     Active Substance: ACETAMINOPHEN
  64. DOCUSATE [Concomitant]
     Active Substance: DOCUSATE
  65. EMTRICITABINE [Concomitant]
     Active Substance: EMTRICITABINE

REACTIONS (13)
  - Bone loss [Unknown]
  - Economic problem [Unknown]
  - Pain [Unknown]
  - Multiple fractures [Not Recovered/Not Resolved]
  - Bone density abnormal [Unknown]
  - Tooth loss [Unknown]
  - Osteoarthritis [Not Recovered/Not Resolved]
  - Emotional distress [Unknown]
  - Osteoporosis [Unknown]
  - Bone density decreased [Not Recovered/Not Resolved]
  - Anhedonia [Unknown]
  - Anxiety [Unknown]
  - Toothache [Not Recovered/Not Resolved]

NARRATIVE: CASE EVENT DATE: 20130117
